FAERS Safety Report 5947474-2 (Version None)
Quarter: 2008Q4

REPORT INFORMATION
  Report Type: 
  Country: None (occurrence: None)
  Receive Date: 20081110
  Receipt Date: 20081030
  Transmission Date: 20090506
  Serious: Yes (Hospitalization)
  Sender: FDA-Public Use
  Company Number: PHHY2008CL26457

PATIENT
  Age: 56 Year
  Sex: Male

DRUGS (1)
  1. TAREG [Suspect]
     Indication: HYPERTENSION
     Dosage: 160 MG, QD
     Route: 048
     Dates: start: 20080701

REACTIONS (1)
  - PNEUMONIA [None]
